FAERS Safety Report 7638664-1 (Version None)
Quarter: 2011Q3

REPORT INFORMATION
  Report Type: 
  Country: None (occurrence: None)
  Receive Date: 20110726
  Receipt Date: 20110726
  Transmission Date: 20111222
  Serious: Yes (Hospitalization)
  Sender: FDA-Public Use
  Company Number: None

PATIENT
  Age: 76 Year
  Sex: Female
  Weight: 97.0698 kg

DRUGS (2)
  1. PROPOFOL [Suspect]
     Indication: ANAESTHESIA
     Dosage: 140MG
  2. PROPOFOL [Suspect]
     Indication: SEDATION
     Dosage: 140MG

REACTIONS (4)
  - NAUSEA [None]
  - PALLOR [None]
  - HEADACHE [None]
  - CHILLS [None]
